FAERS Safety Report 6104704-4 (Version None)
Quarter: 2009Q1

REPORT INFORMATION
  Report Type: 
  Country: None (occurrence: None)
  Receive Date: 20090302
  Receipt Date: 20090216
  Transmission Date: 20090719
  Serious: Yes (Other)
  Sender: FDA-Public Use
  Company Number: 090204-0000133

PATIENT
  Age: 9 Year
  Sex: Male

DRUGS (9)
  1. NEMBUTAL [Suspect]
     Indication: STATUS EPILEPTICUS
     Dosage: CONTINOUS;IV
     Route: 042
  2. ACETAZOLAMIDE [Suspect]
     Indication: STATUS EPILEPTICUS
  3. LORAZEPAM [Concomitant]
  4. FOSPHENYTOIN [Concomitant]
  5. ACETAZOLAMIDE [Concomitant]
  6. VALPROIC ACID [Concomitant]
  7. MIDAZOLAM HCL [Concomitant]
  8. PHENOBARTIBAL [Concomitant]
  9. DIAZEPAM [Concomitant]

REACTIONS (1)
  - METABOLIC ACIDOSIS [None]
